FAERS Safety Report 14513974 (Version 1)
Quarter: 2018Q1

REPORT INFORMATION
  Report Type: Spontaneous
  Country: US (occurrence: US)
  Receive Date: 20180208
  Receipt Date: 20180208
  Transmission Date: 20180509
  Serious: Yes (Disabling)
  Sender: FDA-Public Use
  Company Number: None

PATIENT
  Age: 40 Year
  Sex: Female
  Weight: 94.5 kg

DRUGS (6)
  1. HYOCYAMINE [Concomitant]
  2. KLONOPIN [Concomitant]
     Active Substance: CLONAZEPAM
  3. ADDERALL [Concomitant]
     Active Substance: AMPHETAMINE ASPARTATE\AMPHETAMINE SULFATE\DEXTROAMPHETAMINE SACCHARATE\DEXTROAMPHETAMINE SULFATE
  4. LAMOTRIGINE 200MG TABLETS [Suspect]
     Active Substance: LAMOTRIGINE
     Indication: BIPOLAR DISORDER
     Dosage: ?          QUANTITY:30 TABLET(S);?
     Route: 048
     Dates: start: 20180126, end: 20180127
  5. GEODON [Concomitant]
     Active Substance: ZIPRASIDONE HYDROCHLORIDE\ZIPRASIDONE MESYLATE
  6. WELLBUTRIN [Concomitant]
     Active Substance: BUPROPION HYDROCHLORIDE

REACTIONS (9)
  - Anger [None]
  - Crying [None]
  - Mood swings [None]
  - Diplopia [None]
  - Coordination abnormal [None]
  - Vision blurred [None]
  - Intentional self-injury [None]
  - Thinking abnormal [None]
  - Memory impairment [None]

NARRATIVE: CASE EVENT DATE: 20180127
